FAERS Safety Report 9481996 (Version 1)
Quarter: 2013Q3

REPORT INFORMATION
  Report Type: Spontaneous
  Country: CA (occurrence: CA)
  Receive Date: 20130828
  Receipt Date: 20130828
  Transmission Date: 20140515
  Serious: Yes (Hospitalization)
  Sender: FDA-Public Use
  Company Number: CA-ROCHE-1266389

PATIENT
  Sex: Female

DRUGS (4)
  1. XOLAIR [Suspect]
     Indication: ASTHMA
     Route: 065
     Dates: start: 20090408
  2. XOLAIR [Suspect]
     Route: 065
     Dates: start: 20130306
  3. CIPROFLOXACIN [Concomitant]
  4. CORTISONE [Concomitant]

REACTIONS (6)
  - Bronchitis [Unknown]
  - Influenza [Unknown]
  - Dyspnoea [Unknown]
  - Fatigue [Unknown]
  - Blood pressure increased [Unknown]
  - Blood pressure decreased [Unknown]
